FAERS Safety Report 4681977-6 (Version None)
Quarter: 2005Q2

REPORT INFORMATION
  Report Type: 
  Country: None (occurrence: None)
  Receive Date: 20050602
  Receipt Date: 20050525
  Transmission Date: 20051028
  Serious: Yes (Hospitalization, Other)
  Sender: FDA-Public Use
  Company Number: 2013565

PATIENT
  Age: 37 Year
  Sex: Male
  Weight: 83.4 kg

DRUGS (45)
  1. OXYCONTIN [Suspect]
     Indication: PAIN
     Dosage: 10 MG , BID, ORAL
     Route: 048
     Dates: start: 20000121, end: 20000901
  2. OXYCONTIN TABLETS 20 MG (OXYCODONE HYDROCHLRIDE) CR TABLET [Suspect]
     Indication: PAIN
     Dosage: 20 MG, BID, ORAL
     Route: 048
     Dates: start: 20010116, end: 20010216
  3. OXYCONTIN TABLETS 20 MG (OXYCODONE HYDROCHLRIDE) CR TABLET [Suspect]
     Indication: PAIN
     Dosage: 20 MG, BID, ORAL
     Route: 048
     Dates: start: 20021012
  4. VALIUM [Concomitant]
  5. PROMETHAZINE HYDROCHLORIDE TAB [Concomitant]
  6. PROZAC (FLUOXEITNE HYDROCHLORIDE) [Concomitant]
  7. ATIVAN [Concomitant]
  8. AMBIEN [Concomitant]
  9. HYDROXYZINE HCL [Concomitant]
  10. CLONIDINE HYDROCHLORIDE (CLONIDINE HYDROCHLRIDE) [Concomitant]
  11. ZYPREXA [Concomitant]
  12. DICLYCLOVERINE HYDROCHLORIDE (DICYCLOVERINE HYDROCHLORIDE) [Concomitant]
  13. VIOXX [Concomitant]
  14. SEROQUEL [Concomitant]
  15. SERZONE [Concomitant]
  16. NEURONTIN [Concomitant]
  17. NITROGLYCERIN [Concomitant]
  18. ULTRAM [Concomitant]
  19. LOTRONEX [Concomitant]
  20. LODINE [Concomitant]
  21. DOXYCYCLINE [Concomitant]
  22. IMIPRAMINE [Concomitant]
  23. CIPRO [Concomitant]
  24. VEETIDS [Concomitant]
  25. DIPHENOXYLATE W/ATROPINE SULFATE (ATROPINE SULFATE, DIPHENOXYLATE) [Concomitant]
  26. TYLENOL (CAPLET) [Concomitant]
  27. PERI-COLACE 8.6 MG/50 MG (SENNOSIDE A+B , DOCUSATE SODUM) TABLET [Concomitant]
  28. PERCOCET-5 (OXYCODONE TEREPHTHALATE) [Concomitant]
  29. FLOMAX (MORNIFULUMATE) [Concomitant]
  30. ALBUTEROL (SALBUTAMOL) AEROSOL [Concomitant]
  31. PREDNISONE [Concomitant]
  32. PREVACID [Concomitant]
  33. VISTARIL [Concomitant]
  34. VICODIN [Concomitant]
  35. HYDROXYZINE PAMOATE (HYDROZYSINE EMBONATE) [Concomitant]
  36. AMITRIPTYLINE HCL [Concomitant]
  37. RESTORIL [Concomitant]
  38. NITROGLYCERIN [Concomitant]
  39. ZITHROMAX [Concomitant]
  40. ROBITUSSIN [Concomitant]
  41. SOLU-MEDROL [Concomitant]
  42. ACETAMINOPHEN AND HYDROCODONE BITARTRATE [Concomitant]
  43. DOXEPIN HYDROCHLORIDE (DOXEPIN HYDROCHLORIDE) [Concomitant]
  44. CELEBREX [Concomitant]
  45. LORAZEPAM [Concomitant]

REACTIONS (95)
  - ABDOMINAL DISCOMFORT [None]
  - ABDOMINAL PAIN [None]
  - ABNORMAL DREAMS [None]
  - AFFECT LABILITY [None]
  - AGITATION [None]
  - AGORAPHOBIA [None]
  - ALCOHOL USE [None]
  - AMNESIA [None]
  - ANOREXIA [None]
  - ANXIETY [None]
  - ARTERIAL OCCLUSIVE DISEASE [None]
  - ARTHRALGIA [None]
  - ASTHENIA [None]
  - ASTHMA [None]
  - BACK PAIN [None]
  - BRONCHITIS [None]
  - CHEST PAIN [None]
  - CHILLS [None]
  - CLAUSTROPHOBIA [None]
  - CONDITION AGGRAVATED [None]
  - CONFUSIONAL STATE [None]
  - CORONARY ARTERY DISEASE [None]
  - COUGH [None]
  - DECREASED APPETITE [None]
  - DEHYDRATION [None]
  - DEPRESSION [None]
  - DIARRHOEA [None]
  - DISTURBANCE IN ATTENTION [None]
  - DIZZINESS [None]
  - DRUG ABUSER [None]
  - DRUG DEPENDENCE [None]
  - DRUG INEFFECTIVE [None]
  - DRUG TOLERANCE INCREASED [None]
  - DYSPNOEA [None]
  - DYSTHYMIC DISORDER [None]
  - DYSURIA [None]
  - EAR PAIN [None]
  - EMOTIONAL DISORDER [None]
  - EYE IRRITATION [None]
  - EYE PAIN [None]
  - FAECES DISCOLOURED [None]
  - FATIGUE [None]
  - GASTROOESOPHAGEAL REFLUX DISEASE [None]
  - GENERALISED OEDEMA [None]
  - HAEMOGLOBIN DECREASED [None]
  - HAEMORRHOIDS [None]
  - HALLUCINATION, AUDITORY [None]
  - HALLUCINATION, OLFACTORY [None]
  - HALLUCINATION, VISUAL [None]
  - HEADACHE [None]
  - HIATUS HERNIA [None]
  - HYPERHIDROSIS [None]
  - HYPOAESTHESIA [None]
  - INSOMNIA [None]
  - IRRITABILITY [None]
  - IRRITABLE BOWEL SYNDROME [None]
  - JOINT EFFUSION [None]
  - LABORATORY TEST ABNORMAL [None]
  - LACRIMATION INCREASED [None]
  - LIBIDO DECREASED [None]
  - LYMPHOCYTE COUNT DECREASED [None]
  - MEAN CELL HAEMOGLOBIN INCREASED [None]
  - MELAENA [None]
  - MEMORY IMPAIRMENT [None]
  - MITRAL VALVE INCOMPETENCE [None]
  - MITRAL VALVE PROLAPSE [None]
  - MONOCYTE COUNT INCREASED [None]
  - MOOD ALTERED [None]
  - MYOCARDIAL ISCHAEMIA [None]
  - NASAL SINUS DRAINAGE [None]
  - NAUSEA [None]
  - NERVOUSNESS [None]
  - NEUROPATHY [None]
  - NIGHTMARE [None]
  - OEDEMA PERIPHERAL [None]
  - PALLOR [None]
  - PANIC ATTACK [None]
  - PARANOIA [None]
  - PERSONALITY DISORDER [None]
  - PHARYNGOLARYNGEAL PAIN [None]
  - POLLAKIURIA [None]
  - POST PROCEDURAL COMPLICATION [None]
  - PYREXIA [None]
  - RECTAL HAEMORRHAGE [None]
  - RED BLOOD CELL COUNT DECREASED [None]
  - RED BLOOD CELL SEDIMENTATION RATE INCREASED [None]
  - SCROTAL OEDEMA [None]
  - SPEECH DISORDER [None]
  - STRESS [None]
  - SUICIDAL IDEATION [None]
  - TESTICULAR SWELLING [None]
  - THINKING ABNORMAL [None]
  - TRICUSPID VALVE INCOMPETENCE [None]
  - VOMITING [None]
  - WEIGHT DECREASED [None]
